FAERS Safety Report 10695654 (Version 1)
Quarter: 2014Q4

REPORT INFORMATION
  Report Type: Report from Study
  Country: US (occurrence: None)
  Receive Date: 20141223
  Receipt Date: 20141223
  Transmission Date: 20150529
  Serious: Yes (Other)
  Sender: FDA-Public Use
  Company Number: CABO-14004791

PATIENT
  Age: 28 Year
  Sex: Male

DRUGS (3)
  1. XANAX [Concomitant]
     Active Substance: ALPRAZOLAM
  2. XARELTO [Concomitant]
     Active Substance: RIVAROXABAN
  3. COMETRIQ [Suspect]
     Active Substance: CABOZANTINIB S-MALATE
     Indication: TRACHEAL CANCER
     Route: 048
     Dates: start: 20140815, end: 20140928

REACTIONS (7)
  - Weight decreased [None]
  - Skin exfoliation [None]
  - Food intolerance [None]
  - Dyspepsia [None]
  - Neoplasm [None]
  - Hair colour changes [None]
  - Off label use [None]

NARRATIVE: CASE EVENT DATE: 2014
